FAERS Safety Report 15986380 (Version 1)
Quarter: 2019Q1

REPORT INFORMATION
  Report Type: Spontaneous
  Country: SA (occurrence: SA)
  Receive Date: 20190220
  Receipt Date: 20190220
  Transmission Date: 20190418
  Serious: Yes (Hospitalization, Other)
  Sender: FDA-Public Use
  Company Number: None

PATIENT

DRUGS (1)
  1. WARFARIN [Suspect]
     Active Substance: WARFARIN

REACTIONS (6)
  - International normalised ratio increased [None]
  - Blood potassium decreased [None]
  - Melaena [None]
  - Muscular weakness [None]
  - Haematemesis [None]
  - White blood cell count increased [None]
